FAERS Safety Report 18044068 (Version 1)
Quarter: 2020Q3

REPORT INFORMATION
  Report Type: Spontaneous
  Country: US (occurrence: US)
  Receive Date: 20200718
  Receipt Date: 20200718
  Transmission Date: 20201103
  Serious: Yes (Hospitalization)
  Sender: FDA-Public Use
  Company Number: None

PATIENT
  Age: 71 Year
  Sex: Male
  Weight: 79.4 kg

DRUGS (2)
  1. TAXOL [Suspect]
     Active Substance: PACLITAXEL
     Dates: end: 20200609
  2. CARBOPLATIN (241240) [Suspect]
     Active Substance: CARBOPLATIN
     Dates: end: 20200609

REACTIONS (8)
  - Candida infection [None]
  - Dizziness [None]
  - Peripheral swelling [None]
  - Sinus tachycardia [None]
  - Dysphagia [None]
  - Gait disturbance [None]
  - Chronic obstructive pulmonary disease [None]
  - Dehydration [None]

NARRATIVE: CASE EVENT DATE: 20200615
